FAERS Safety Report 14979208 (Version 1)
Quarter: 2018Q2

REPORT INFORMATION
  Report Type: Report from Study
  Country: US (occurrence: US)
  Receive Date: 20180606
  Receipt Date: 20180606
  Transmission Date: 20180711
  Serious: Yes (Other)
  Sender: FDA-Public Use
  Company Number: US-GILEAD-2018-0328917

PATIENT
  Age: 69 Year
  Sex: Male

DRUGS (1)
  1. IDELALISIB [Suspect]
     Active Substance: IDELALISIB
     Indication: CHRONIC LYMPHOCYTIC LEUKAEMIA
     Dosage: 150 MG, BID
     Route: 048
     Dates: start: 20170301

REACTIONS (6)
  - Haemoptysis [Not Recovered/Not Resolved]
  - Skin cancer [Not Recovered/Not Resolved]
  - Pneumonia [Recovering/Resolving]
  - Rhinorrhoea [Not Recovered/Not Resolved]
  - Cough [Not Recovered/Not Resolved]
  - International normalised ratio increased [Not Recovered/Not Resolved]

NARRATIVE: CASE EVENT DATE: 201711
